FAERS Safety Report 19052891 (Version 1)
Quarter: 2021Q1

REPORT INFORMATION
  Report Type: Spontaneous
  Country: US (occurrence: US)
  Receive Date: 20210325
  Receipt Date: 20210325
  Transmission Date: 20210420
  Serious: Yes (Hospitalization, Other)
  Sender: FDA-Public Use
  Company Number: US-AMGEN-USASP2021042011

PATIENT
  Age: 60 Year
  Sex: Female

DRUGS (7)
  1. SODIUM VALPROATE [Concomitant]
     Active Substance: VALPROATE SODIUM
     Dosage: 500 MILLIGRAM, TID
  2. AMLODIPINE [Concomitant]
     Active Substance: AMLODIPINE BESYLATE
     Dosage: 10 MILLIGRAM
  3. POLYETHYLENE GLYCOL [MACROGOL] [Concomitant]
     Active Substance: POLYETHYLENE GLYCOLS
     Dosage: 200 MILLIGRAM
  4. NEUPOGEN [Suspect]
     Active Substance: FILGRASTIM
     Dosage: 800 MICROGRAM, QD
     Route: 058
  5. DOCUSATE [Concomitant]
     Active Substance: DOCUSATE
     Dosage: 200 MILLIGRAM
  6. NEUPOGEN [Suspect]
     Active Substance: FILGRASTIM
     Indication: AGRANULOCYTOSIS
     Dosage: 300 MICROGRAM, QD
     Route: 058
  7. CLOZAPINE. [Concomitant]
     Active Substance: CLOZAPINE
     Dosage: 25 MG DAILY TITRATED TO 150 MG BID FOR 28 DAYS
     Route: 048

REACTIONS (3)
  - Cellulitis [Unknown]
  - Acute kidney injury [Unknown]
  - Off label use [Unknown]
